FAERS Safety Report 5185322-1 (Version None)
Quarter: 2006Q4

REPORT INFORMATION
  Report Type: 
  Country: None (occurrence: None)
  Receive Date: 20061220
  Receipt Date: 20060710
  Transmission Date: 20070319
  Serious: Yes (Hospitalization)
  Sender: FDA-Public Use
  Company Number: PHHO2006US11090

PATIENT
  Age: 34 Year
  Sex: Male
  Weight: 55 kg

DRUGS (11)
  1. CERTICAN [Suspect]
     Indication: RENAL TRANSPLANT
     Route: 048
     Dates: start: 20060620
  2. ATENOLOL [Concomitant]
  3. HYDRALAZINE HCL [Concomitant]
  4. NEORAL [Suspect]
     Indication: RENAL TRANSPLANT
     Dosage: 50 MG, BID
     Route: 048
  5. PREDNISONE TAB [Concomitant]
     Indication: RENAL TRANSPLANT
     Dosage: 22.5 MG /DAILY
     Route: 048
  6. NYSTATIN [Concomitant]
  7. BACTRIM [Concomitant]
  8. COLACE [Concomitant]
  9. PEPCID [Concomitant]
  10. VALCYTE [Concomitant]
  11. NIFEDIPINE HCL [Concomitant]

REACTIONS (11)
  - ABDOMINAL PAIN LOWER [None]
  - BLOOD CREATININE INCREASED [None]
  - CONSTIPATION [None]
  - ECCHYMOSIS [None]
  - HAEMATOMA EVACUATION [None]
  - KIDNEY TRANSPLANT REJECTION [None]
  - PAIN [None]
  - PERIRENAL HAEMATOMA [None]
  - POLLAKIURIA [None]
  - PYREXIA [None]
  - URINE OUTPUT DECREASED [None]
